FAERS Safety Report 5862832-2 (Version None)
Quarter: 2008Q3

REPORT INFORMATION
  Report Type: 
  Country: None (occurrence: None)
  Receive Date: 20080828
  Receipt Date: 20080821
  Transmission Date: 20090109
  Serious: Yes (Hospitalization, Other)
  Sender: FDA-Public Use
  Company Number: US-AMGEN-QUU292364

PATIENT
  Sex: Female
  Weight: 50.8 kg

DRUGS (8)
  1. ENBREL [Suspect]
     Indication: PSORIATIC ARTHROPATHY
     Route: 058
     Dates: end: 20080630
  2. ENBREL [Suspect]
     Indication: RHEUMATOID ARTHRITIS
  3. LIDODERM PATCH (ENDO PHARMACEUTICALS) [Concomitant]
     Route: 062
  4. VOLTAREN [Concomitant]
  5. MULTI-VITAMINS [Concomitant]
  6. DOVONEX [Concomitant]
     Route: 062
  7. INDERAL [Concomitant]
  8. ASCORBIC ACID [Concomitant]

REACTIONS (9)
  - COUGH [None]
  - GLAUCOMA [None]
  - HYPOTHYROIDISM [None]
  - LUNG INFILTRATION [None]
  - MULTIPLE MYELOMA [None]
  - OSTEOPOROSIS [None]
  - RENAL FAILURE ACUTE [None]
  - SPINAL OSTEOARTHRITIS [None]
  - SYNOVITIS [None]
